FAERS Safety Report 20988639 (Version 1)
Quarter: 2022Q2

REPORT INFORMATION
  Report Type: Spontaneous
  Country: CN (occurrence: CN)
  Receive Date: 20220621
  Receipt Date: 20220621
  Transmission Date: 20220720
  Serious: Yes (Other)
  Sender: FDA-Public Use
  Company Number: CN-NOVARTISPH-NVSC2022CN141709

PATIENT
  Age: 47 Year
  Sex: Male

DRUGS (6)
  1. AMOXICILLIN\CLAVULANATE POTASSIUM [Suspect]
     Active Substance: AMOXICILLIN\CLAVULANATE POTASSIUM
     Indication: Pulmonary tuberculosis
     Dosage: UNK
     Route: 065
     Dates: end: 20210919
  2. ISONIAZID [Suspect]
     Active Substance: ISONIAZID
     Indication: Pulmonary tuberculosis
     Dosage: UNK
     Route: 065
     Dates: end: 20210919
  3. MEROPENEM [Suspect]
     Active Substance: MEROPENEM
     Indication: Pulmonary tuberculosis
     Dosage: UNK
     Route: 065
     Dates: end: 20210919
  4. CYCLOSERINE [Suspect]
     Active Substance: CYCLOSERINE
     Indication: Pulmonary tuberculosis
     Dosage: UNK
     Route: 065
     Dates: end: 20210919
  5. PARA-AMINOSALICYLIC ACID [Suspect]
     Active Substance: AMINOSALICYLIC ACID
     Indication: Pulmonary tuberculosis
     Dosage: UNK
     Route: 065
     Dates: end: 20210919
  6. BEDAQUILINE [Suspect]
     Active Substance: BEDAQUILINE
     Indication: Pulmonary tuberculosis
     Dosage: UNK
     Route: 065
     Dates: end: 20210919

REACTIONS (3)
  - Pulmonary tuberculosis [Unknown]
  - Condition aggravated [Unknown]
  - Product use in unapproved indication [Unknown]
